FAERS Safety Report 8047802-0 (Version None)
Quarter: 2012Q1

REPORT INFORMATION
  Report Type: 
  Country: None (occurrence: None)
  Receive Date: 20120116
  Receipt Date: 20120110
  Transmission Date: 20120608
  Serious: Yes (Hospitalization)
  Sender: FDA-Public Use
  Company Number: PHEH2011US06485

PATIENT
  Sex: Female

DRUGS (5)
  1. PULMOZYME [Concomitant]
  2. HYPERTONIC SOLUTIONS [Concomitant]
  3. OMEPRAZOLE [Concomitant]
     Indication: GASTROOESOPHAGEAL REFLUX DISEASE
  4. ADVAIR DISKUS 100/50 [Concomitant]
  5. TOBI [Suspect]
     Indication: CYSTIC FIBROSIS
     Dosage: 300 MG, BID Q 28 DAY
     Dates: start: 20110601

REACTIONS (8)
  - CYSTIC FIBROSIS [None]
  - DECREASED APPETITE [None]
  - RHINORRHOEA [None]
  - FORCED EXPIRATORY VOLUME ABNORMAL [None]
  - INCREASED BRONCHIAL SECRETION [None]
  - PRODUCTIVE COUGH [None]
  - WEIGHT DECREASED [None]
  - MALAISE [None]
